FAERS Safety Report 4704926-0 (Version None)
Quarter: 2005Q2

REPORT INFORMATION
  Report Type: 
  Country: None (occurrence: None)
  Receive Date: 20050630
  Receipt Date: 20050630
  Transmission Date: 20051028
  Serious: Yes (Life-Threatening)
  Sender: FDA-Public Use
  Company Number: None

PATIENT
  Age: 66 Year
  Sex: Male

DRUGS (11)
  1. MOXIFLOXACIN HCL [Suspect]
     Dosage: 200MG   INTRAVENOU
     Route: 042
     Dates: start: 20050513, end: 20050513
  2. PANTOPROZOLE [Concomitant]
  3. PIPERICILLIN/TAZOBACTAM [Concomitant]
  4. DARPEPOETIN [Concomitant]
  5. METRONIDAZOLE [Concomitant]
  6. NITROGLYCERIN [Concomitant]
  7. MEXILETINE HCL [Concomitant]
  8. OXYCODONE AND ACETAMINOPHEN [Concomitant]
  9. FOLIC ACID [Concomitant]
  10. NEPHRO-VITE [Concomitant]
  11. METOPROLOL [Concomitant]

REACTIONS (5)
  - HYPOMAGNESAEMIA [None]
  - PULSE ABSENT [None]
  - TORSADE DE POINTES [None]
  - VENTRICULAR EXTRASYSTOLES [None]
  - VENTRICULAR TACHYCARDIA [None]
